FAERS Safety Report 15655407 (Version 1)
Quarter: 2018Q4

REPORT INFORMATION
  Report Type: Other
  Country: ES (occurrence: ES)
  Receive Date: 20181126
  Receipt Date: 20181126
  Transmission Date: 20190205
  Serious: Yes (Other)
  Sender: FDA-Public Use
  Company Number: ES-APOTEX-2018AP025022

PATIENT
  Age: 71 Year
  Sex: Female

DRUGS (1)
  1. QUETIAPINE. [Suspect]
     Active Substance: QUETIAPINE
     Indication: PRODUCT USED FOR UNKNOWN INDICATION
     Dosage: || DOSIS UNIDAD FRECUENCIA: 100 MG-MILIGRAMOS || DOSIS POR TOMA: 50 MG-MILIGRAMOS || N? TOMAS POR...
     Route: 048
     Dates: start: 20170608, end: 20171024

REACTIONS (1)
  - Hepatitis acute [Recovered/Resolved]

NARRATIVE: CASE EVENT DATE: 20170622
